FAERS Safety Report 5652934-8 (Version None)
Quarter: 2008Q1

REPORT INFORMATION
  Report Type: 
  Country: None (occurrence: None)
  Receive Date: 20080306
  Receipt Date: 20080225
  Transmission Date: 20080703
  Serious: Yes (Hospitalization, Other)
  Sender: FDA-Public Use
  Company Number: US-ROCHE-483329

PATIENT
  Age: 20 Year
  Sex: Male
  Weight: 68.5 kg

DRUGS (4)
  1. ACCUTANE [Suspect]
     Indication: ACNE
     Route: 048
     Dates: start: 19980327, end: 19980920
  2. CLARITIN-D [Concomitant]
     Dates: start: 19980101
  3. NASONEX [Concomitant]
     Dates: start: 19980101
  4. ST. JOHN'S WORT [Concomitant]
     Dates: start: 19980101

REACTIONS (19)
  - ANAEMIA [None]
  - ANXIETY [None]
  - BLEPHARITIS [None]
  - BLOOD TRIGLYCERIDES INCREASED [None]
  - COLITIS [None]
  - COLITIS ULCERATIVE [None]
  - CONJUNCTIVITIS [None]
  - CROHN'S DISEASE [None]
  - DEPRESSION [None]
  - EMOTIONAL DISORDER [None]
  - EMOTIONAL DISTRESS [None]
  - INFLAMMATORY BOWEL DISEASE [None]
  - INSOMNIA [None]
  - IRRITABLE BOWEL SYNDROME [None]
  - LEUKOCYTOSIS [None]
  - PANIC ATTACK [None]
  - POLYP [None]
  - PROCTOCOLITIS [None]
  - THROMBOCYTHAEMIA [None]
